FAERS Safety Report 6910825-6 (Version None)
Quarter: 2010Q3

REPORT INFORMATION
  Report Type: 
  Country: None (occurrence: None)
  Receive Date: 20100806
  Receipt Date: 20100722
  Transmission Date: 20110219
  Serious: Yes (Other)
  Sender: FDA-Public Use
  Company Number: US-JNJFOC-20100800976

PATIENT
  Age: 53 Year
  Sex: Female
  Weight: 73.03 kg

DRUGS (3)
  1. EXTRA STRENGTH TYLENOL [Suspect]
     Route: 048
  2. EXTRA STRENGTH TYLENOL [Suspect]
     Indication: HEADACHE
     Route: 048
  3. TAMOXIFEN [Interacting]
     Indication: BREAST CANCER

REACTIONS (3)
  - CONVULSION [None]
  - DRUG INTERACTION [None]
  - HYPERSOMNIA [None]
